FAERS Safety Report 4540968-6 (Version None)
Quarter: 2004Q4

REPORT INFORMATION
  Report Type: 
  Country: None (occurrence: None)
  Receive Date: 20041228
  Receipt Date: 20041215
  Transmission Date: 20050328
  Serious: Yes (Hospitalization)
  Sender: FDA-Public Use
  Company Number: 2004CG02529

PATIENT
  Age: 88 Year
  Sex: Male

DRUGS (5)
  1. NEXIUM [Suspect]
     Dosage: 40 MG QD PO
     Route: 048
     Dates: end: 20041117
  2. OFLOCET [Suspect]
     Dosage: 200 MG BID PO
     Route: 048
     Dates: start: 20041113, end: 20041117
  3. AUGMENTIN '125' [Suspect]
     Dosage: 3 G + 600 MG QD
     Dates: start: 20041112, end: 20041117
  4. PRIMPERAN INJ [Suspect]
     Dosage: 1O MG TID
     Dates: start: 20041112, end: 20041117
  5. HYDROCORTISONE [Concomitant]

REACTIONS (2)
  - ACUTE PULMONARY OEDEMA [None]
  - NEUTROPENIA [None]
